FAERS Safety Report 15687482 (Version 1)
Quarter: 2018Q4

REPORT INFORMATION
  Report Type: Spontaneous
  Country: US (occurrence: US)
  Receive Date: 20181205
  Receipt Date: 20181205
  Transmission Date: 20190205
  Serious: No
  Sender: FDA-Public Use
  Company Number: US-ROCHE-2035149

PATIENT
  Age: 6 Year
  Sex: Male
  Weight: 14 kg

DRUGS (4)
  1. PHENOBARBITAL. [Concomitant]
     Active Substance: PHENOBARBITAL
     Route: 065
  2. PHENYTOIN. [Concomitant]
     Active Substance: PHENYTOIN
     Route: 065
  3. CARBAMAZEPINE. [Concomitant]
     Active Substance: CARBAMAZEPINE
     Route: 065
  4. VALIUM [Suspect]
     Active Substance: DIAZEPAM
     Indication: STATUS EPILEPTICUS
     Dosage: HE RECEIVED AN ADDITIONAL 2 MG RECTALLY AFTER TWO MINUTES (SECOND DOSE)?THREE MINUTES AFTER ADMINIST
     Route: 054

REACTIONS (3)
  - Product use issue [Unknown]
  - No adverse event [Unknown]
  - Off label use [Unknown]
